FAERS Safety Report 10125567 (Version 1)
Quarter: 2014Q2

REPORT INFORMATION
  Report Type: Spontaneous
  Country: US (occurrence: US)
  Receive Date: 20140425
  Receipt Date: 20140425
  Transmission Date: 20141212
  Serious: Yes (Other)
  Sender: FDA-Public Use
  Company Number: US-ABBVIE-14P-163-1227041-00

PATIENT
  Age: 55 Year
  Sex: Male
  Weight: 88.98 kg

DRUGS (6)
  1. ANDROGEL [Suspect]
     Indication: PRODUCT USED FOR UNKNOWN INDICATION
     Dosage: 4 PUMPS DAILY
     Route: 061
     Dates: start: 201201, end: 201305
  2. ANDROGEL [Suspect]
     Dosage: 4 PUMPS DAILY
     Route: 061
     Dates: start: 201306, end: 201306
  3. NAPROSYN [Concomitant]
     Indication: PRODUCT USED FOR UNKNOWN INDICATION
  4. PAXIL [Concomitant]
     Indication: PRODUCT USED FOR UNKNOWN INDICATION
  5. SYMBICORT [Concomitant]
     Indication: PRODUCT USED FOR UNKNOWN INDICATION
  6. PROAIR [Concomitant]
     Indication: PRODUCT USED FOR UNKNOWN INDICATION

REACTIONS (11)
  - Prostatomegaly [Recovered/Resolved]
  - Hair growth abnormal [Recovered/Resolved]
  - Thinking abnormal [Recovered/Resolved]
  - Weight decreased [Recovered/Resolved]
  - Drug dose omission [Recovered/Resolved]
  - Prostatitis [Recovered/Resolved]
  - Urinary incontinence [Recovering/Resolving]
  - Scar [Recovered/Resolved]
  - Gait disturbance [Recovered/Resolved]
  - Dysstasia [Recovered/Resolved]
  - Excessive sexual fantasies [Recovered/Resolved]
